FAERS Safety Report 6264111-0 (Version None)
Quarter: 2009Q3

REPORT INFORMATION
  Report Type: 
  Country: None (occurrence: None)
  Receive Date: 20090706
  Receipt Date: 20090122
  Transmission Date: 20100115
  Serious: Yes (Hospitalization)
  Sender: FDA-Public Use
  Company Number: 610007

PATIENT
  Sex: Female

DRUGS (3)
  1. CELLCEPT [Suspect]
     Indication: PROPHYLAXIS AGAINST TRANSPLANT REJECTION
  2. PROGRAF [Concomitant]
  3. ZENAPAX [Concomitant]

REACTIONS (1)
  - NO THERAPEUTIC RESPONSE [None]
